FAERS Safety Report 20204370 (Version 1)
Quarter: 2021Q4

REPORT INFORMATION
  Report Type: Report from Study
  Country: US (occurrence: US)
  Receive Date: 20211220
  Receipt Date: 20211220
  Transmission Date: 20220304
  Serious: Yes (Hospitalization, Other)
  Sender: FDA-Public Use
  Company Number: US-TAKEDA-2021TUS080249

PATIENT
  Sex: Female
  Weight: 70.295 kg

DRUGS (21)
  1. HUMAN IMMUNOGLOBULIN G [Suspect]
     Active Substance: HUMAN IMMUNOGLOBULIN G
     Indication: Immunodeficiency common variable
     Dosage: 10 GRAM, Q2WEEKS
     Route: 058
     Dates: start: 20211019
  2. OXYCODONE [Concomitant]
     Active Substance: OXYCODONE
  3. ACETAMINOPHEN [Concomitant]
     Active Substance: ACETAMINOPHEN
  4. DIPHENHYDRAMINE [Concomitant]
     Active Substance: DIPHENHYDRAMINE
  5. EPINEPHRINE [Concomitant]
     Active Substance: EPINEPHRINE
  6. CRESTOR [Concomitant]
     Active Substance: ROSUVASTATIN CALCIUM
  7. VITAMIN D3 [Concomitant]
     Active Substance: CHOLECALCIFEROL
  8. MEDROL [Concomitant]
     Active Substance: METHYLPREDNISOLONE
  9. MIDODRINE HYDROCHLORIDE [Concomitant]
     Active Substance: MIDODRINE HYDROCHLORIDE
  10. ELIQUIS [Concomitant]
     Active Substance: APIXABAN
  11. OMEPRAZOLE [Concomitant]
     Active Substance: OMEPRAZOLE
  12. ESCITALOPRAM [Concomitant]
     Active Substance: ESCITALOPRAM OXALATE
  13. ALBUTEROL [Concomitant]
     Active Substance: ALBUTEROL
  14. ASCORBIC ACID [Concomitant]
     Active Substance: ASCORBIC ACID
  15. COLACE [Concomitant]
     Active Substance: DOCUSATE SODIUM
  16. OLANZAPINE [Concomitant]
     Active Substance: OLANZAPINE
  17. ONDANSETRON [Concomitant]
     Active Substance: ONDANSETRON
  18. SULFAMETHOXAZOLE AND TRIMETHOPRIM [Concomitant]
     Active Substance: SULFAMETHOXAZOLE\TRIMETHOPRIM
  19. METOLAZONE [Concomitant]
     Active Substance: METOLAZONE
  20. POTASSIUM [Concomitant]
     Active Substance: POTASSIUM
  21. MELATONIN [Concomitant]
     Active Substance: MELATONIN

REACTIONS (1)
  - Pneumonia aspiration [Unknown]
